FAERS Safety Report 7312274-8 (Version None)
Quarter: 2011Q1

REPORT INFORMATION
  Report Type: 
  Country: None (occurrence: None)
  Receive Date: 20110224
  Receipt Date: 20110218
  Transmission Date: 20110831
  Serious: Yes (Life-Threatening)
  Sender: FDA-Public Use
  Company Number: B0657641A

PATIENT
  Sex: Female

DRUGS (5)
  1. ADETPHOS [Concomitant]
     Route: 048
     Dates: start: 20100510, end: 20100513
  2. METHYCOBAL [Concomitant]
     Route: 048
     Dates: start: 20100510, end: 20100513
  3. VALTREX [Suspect]
     Indication: HERPES VIRUS INFECTION
     Dosage: 3000MG PER DAY
     Route: 048
     Dates: start: 20100510, end: 20100513
  4. MUCOSTA [Concomitant]
     Route: 048
     Dates: start: 20100510, end: 20100513
  5. PREDONINE [Concomitant]
     Dates: start: 20100510, end: 20100513

REACTIONS (3)
  - DELIRIUM [None]
  - RENAL FAILURE ACUTE [None]
  - ALTERED STATE OF CONSCIOUSNESS [None]
